FAERS Safety Report 5118872-4 (Version None)
Quarter: 2006Q3

REPORT INFORMATION
  Report Type: 
  Country: None (occurrence: None)
  Receive Date: 20060929
  Receipt Date: 20060929
  Transmission Date: 20061208
  Serious: Yes (Hospitalization)
  Sender: FDA-Public Use
  Company Number: None

PATIENT
  Age: 44 Year
  Sex: Male

DRUGS (1)
  1. GLYBURIDE [Suspect]
     Indication: DIABETES MELLITUS
     Dosage: 7.5 MG BID PO
     Route: 048
     Dates: start: 20060301, end: 20060303

REACTIONS (3)
  - AGGRESSION [None]
  - HYPOGLYCAEMIA [None]
  - THERAPEUTIC PRODUCT INEFFECTIVE [None]
